FAERS Safety Report 12216250 (Version 3)
Quarter: 2016Q2

REPORT INFORMATION
  Report Type: Report from Study
  Country: US (occurrence: US)
  Receive Date: 20160329
  Receipt Date: 20160408
  Transmission Date: 20160815
  Serious: Yes (Death)
  Sender: FDA-Public Use
  Company Number: US-BIOGEN-2016BI00209297

PATIENT
  Sex: Female

DRUGS (2)
  1. AVONEX [Suspect]
     Active Substance: INTERFERON BETA-1A
     Indication: MULTIPLE SCLEROSIS
     Route: 030
     Dates: start: 19990701, end: 20070701
  2. TYSABRI [Suspect]
     Active Substance: NATALIZUMAB
     Indication: MULTIPLE SCLEROSIS
     Dosage: INFUSED OVER 1 HOUR
     Route: 042
     Dates: start: 20070725, end: 20160209

REACTIONS (7)
  - Urinary tract infection [Fatal]
  - Asthenia [Not Recovered/Not Resolved]
  - Sepsis [Fatal]
  - Vomiting [Not Recovered/Not Resolved]
  - Listless [Not Recovered/Not Resolved]
  - Decubitus ulcer [Fatal]
  - Decreased appetite [Not Recovered/Not Resolved]
